FAERS Safety Report 8068628-8 (Version None)
Quarter: 2012Q1

REPORT INFORMATION
  Report Type: 
  Country: None (occurrence: None)
  Receive Date: 20120124
  Receipt Date: 20111115
  Transmission Date: 20120608
  Serious: No
  Sender: FDA-Public Use
  Company Number: US-AMGEN-USASP2011060198

PATIENT
  Age: 81 Year
  Sex: Female

DRUGS (6)
  1. RAMIPRIL [Concomitant]
     Dosage: 1 MG, QD
  2. PROAIR HFA [Concomitant]
     Dosage: UNK
  3. PROLIA [Suspect]
     Indication: OSTEOPOROSIS POSTMENOPAUSAL
     Dosage: 60 MG, Q6MO
     Dates: start: 20110101
  4. AMLODIPINE [Concomitant]
     Dosage: 1 MG, QD
  5. HYDROCHLOROTHIAZIDE [Concomitant]
     Dosage: 1 MG, QD
  6. CRESTOR [Concomitant]
     Dosage: UNK

REACTIONS (4)
  - FALL [None]
  - HIP FRACTURE [None]
  - JOINT SWELLING [None]
  - BACK PAIN [None]
